FAERS Safety Report 21500340 (Version 5)
Quarter: 2023Q2

REPORT INFORMATION
  Report Type: Spontaneous
  Country: CA (occurrence: CA)
  Receive Date: 20221024
  Receipt Date: 20230606
  Transmission Date: 20230722
  Serious: Yes (Other)
  Sender: FDA-Public Use
  Company Number: CA-CELLTRION INC.-2022CA013884

PATIENT

DRUGS (9)
  1. INFLECTRA [Suspect]
     Active Substance: INFLIXIMAB-DYYB
     Indication: Colitis ulcerative
     Dosage: 900 MG,WEEKS 0,2, 6, THEN Q8WEEKS
     Route: 042
     Dates: start: 20220505
  2. INFLECTRA [Suspect]
     Active Substance: INFLIXIMAB-DYYB
     Dosage: 900 MG,WEEKS 0,2, 6, THEN Q8WEEKS
     Route: 042
     Dates: start: 20220810, end: 20220810
  3. INFLECTRA [Suspect]
     Active Substance: INFLIXIMAB-DYYB
     Dosage: 900 MG,WEEKS0,2, 6, THEN Q8WEEKS
     Route: 042
     Dates: start: 20221012, end: 20221012
  4. INFLECTRA [Suspect]
     Active Substance: INFLIXIMAB-DYYB
     Dosage: 900 MG,WEEKS0,2, 6, THEN Q8WEEKS
     Route: 042
     Dates: start: 20230201, end: 20230201
  5. INFLECTRA [Suspect]
     Active Substance: INFLIXIMAB-DYYB
     Dosage: 900 MG,WEEKS0,2, 6, THEN Q8WEEKS
     Route: 042
     Dates: start: 20230329, end: 20230329
  6. INFLECTRA [Suspect]
     Active Substance: INFLIXIMAB-DYYB
     Dosage: 900MG, EVERY 8 WEEKS
     Route: 042
     Dates: start: 20230526
  7. TWYNSTA [Concomitant]
     Active Substance: AMLODIPINE BESYLATE\TELMISARTAN
     Dosage: 1 DF
     Dates: start: 2007
  8. CRESTOR [Concomitant]
     Active Substance: ROSUVASTATIN CALCIUM
     Dosage: 20 MG
     Dates: start: 2012
  9. PREDNISONE [Concomitant]
     Active Substance: PREDNISONE
     Dosage: 40 MG
     Dates: start: 202204

REACTIONS (5)
  - Weight increased [Unknown]
  - Off label use [Unknown]
  - Off label use [Unknown]
  - Intentional product use issue [Unknown]
  - Inappropriate schedule of product administration [Unknown]

NARRATIVE: CASE EVENT DATE: 20220101
